FAERS Safety Report 23567540 (Version 1)
Quarter: 2024Q1

REPORT INFORMATION
  Report Type: Spontaneous
  Country: US (occurrence: US)
  Receive Date: 20240226
  Receipt Date: 20240226
  Transmission Date: 20240410
  Serious: Yes (Disabling, Other)
  Sender: FDA-Public Use
  Company Number: US-ABBVIE-5651554

PATIENT
  Sex: Female

DRUGS (1)
  1. LEXAPRO [Suspect]
     Active Substance: ESCITALOPRAM OXALATE
     Indication: Product used for unknown indication
     Route: 048

REACTIONS (7)
  - Multiple sclerosis [Unknown]
  - Visual impairment [Unknown]
  - Drug hypersensitivity [Unknown]
  - Disability [Unknown]
  - Encephalitis [Unknown]
  - Diarrhoea [Unknown]
  - Drug hypersensitivity [Unknown]
